FAERS Safety Report 24551959 (Version 1)
Quarter: 2024Q4

REPORT INFORMATION
  Report Type: Spontaneous
  Country: BE (occurrence: BE)
  Receive Date: 20241026
  Receipt Date: 20241026
  Transmission Date: 20250115
  Serious: Yes (Life-Threatening, Hospitalization)
  Sender: ACCORD
  Company Number: BE-Accord-451618

PATIENT
  Age: 56 Year
  Sex: Male

DRUGS (2)
  1. CAPECITABINE [Interacting]
     Active Substance: CAPECITABINE
     Indication: Adenocarcinoma of colon
     Dosage: CAPECITABINE 1,000 MG/MG2 FOR 14 DAYS, EVERY 3 WEEKS, 1ST CYCLE WAS STARTED WITH 50% DOSE REDUCTION
  2. OXALIPLATIN [Concomitant]
     Active Substance: OXALIPLATIN
     Indication: Adenocarcinoma of colon
     Dosage: OXALIPLATIN 130 MG/MG2 DAY 1, EVERY 3 WEEKS

REACTIONS (10)
  - Stomatitis [Recovered/Resolved]
  - Diarrhoea [Recovered/Resolved]
  - Vomiting [Recovered/Resolved]
  - Erythema [Recovered/Resolved]
  - Pancytopenia [Recovered/Resolved]
  - Mucosal inflammation [Recovered/Resolved]
  - Febrile neutropenia [Recovered/Resolved]
  - Staphylococcal infection [Recovered/Resolved]
  - Drug-genetic interaction [Recovered/Resolved]
  - Chemotherapeutic drug level increased [Recovered/Resolved]
